FAERS Safety Report 14118641 (Version 3)
Quarter: 2017Q4

REPORT INFORMATION
  Report Type: Spontaneous
  Country: JP (occurrence: JP)
  Receive Date: 20171024
  Receipt Date: 20171226
  Transmission Date: 20180321
  Serious: Yes (Hospitalization, Other)
  Sender: FDA-Public Use
  Company Number: JP-BRISTOL-MYERS SQUIBB COMPANY-BMS-2017-095212

PATIENT
  Age: 65 Year
  Sex: Female

DRUGS (2)
  1. FLOMOX                             /01418603/ [Suspect]
     Active Substance: CEFCAPENE PIVOXIL HYDROCHLORIDE HYDRATE
     Indication: PRODUCT USED FOR UNKNOWN INDICATION
     Route: 065
  2. ELIQUIS [Suspect]
     Active Substance: APIXABAN
     Indication: DEEP VEIN THROMBOSIS
     Route: 065

REACTIONS (5)
  - Peripheral swelling [Unknown]
  - Full blood count decreased [Unknown]
  - Pancytopenia [Unknown]
  - Pain in extremity [Unknown]
  - Pyrexia [Unknown]
